FAERS Safety Report 11512939 (Version 1)
Quarter: 2015Q3

REPORT INFORMATION
  Report Type: Spontaneous
  Country: US (occurrence: None)
  Receive Date: 20150915
  Receipt Date: 20150915
  Transmission Date: 20151125
  Serious: Yes (Hospitalization)
  Sender: FDA-Public Use
  Company Number: None

PATIENT
  Age: 55 Year
  Sex: Female
  Weight: 63.05 kg

DRUGS (5)
  1. LAMICTAL [Concomitant]
     Active Substance: LAMOTRIGINE
  2. BENADRYL [Concomitant]
     Active Substance: DIPHENHYDRAMINE HYDROCHLORIDE
  3. MULTIVITAMIN [Concomitant]
     Active Substance: VITAMINS
  4. LOSARTAN. [Concomitant]
     Active Substance: LOSARTAN
  5. LATUDA [Suspect]
     Active Substance: LURASIDONE HYDROCHLORIDE
     Indication: BIPOLAR DISORDER
     Dosage: 1 PILL
     Route: 048
     Dates: start: 20150701, end: 20150913

REACTIONS (6)
  - Abnormal behaviour [None]
  - Influenza like illness [None]
  - Dyspnoea [None]
  - Feeling hot [None]
  - Tachyphrenia [None]
  - Nervousness [None]

NARRATIVE: CASE EVENT DATE: 20150814
